FAERS Safety Report 5834518-1 (Version None)
Quarter: 2008Q3

REPORT INFORMATION
  Report Type: 
  Country: None (occurrence: None)
  Receive Date: 20080805
  Receipt Date: 20080724
  Transmission Date: 20090109
  Serious: Yes (Other)
  Sender: FDA-Public Use
  Company Number: ES-PFIZER INC-2008062236

PATIENT
  Age: 32 Year
  Sex: Male

DRUGS (1)
  1. PREGABALIN [Suspect]
     Indication: TINNITUS
     Route: 048

REACTIONS (3)
  - GLARE [None]
  - PHOTOPSIA [None]
  - VITREOUS DEGENERATION [None]
